FAERS Safety Report 13252609 (Version 2)
Quarter: 2017Q1

REPORT INFORMATION
  Report Type: Spontaneous
  Country: US (occurrence: US)
  Receive Date: 20170220
  Receipt Date: 20170308
  Transmission Date: 20170428
  Serious: No
  Sender: FDA-Public Use
  Company Number: US-ASTRAZENECA-2017SE16201

PATIENT
  Sex: Female
  Weight: 74.8 kg

DRUGS (1)
  1. PULMICORT FLEXHALER [Suspect]
     Active Substance: BUDESONIDE
     Indication: LUNG DISORDER
     Dosage: 90 MCG, TWO PUFFS TWICE A DAY
     Route: 055

REACTIONS (11)
  - Feeling abnormal [Unknown]
  - Circumstance or information capable of leading to medication error [Unknown]
  - Fatigue [Unknown]
  - Dyspnoea [Unknown]
  - Drug dose omission [Unknown]
  - Off label use [Unknown]
  - Asthma [Unknown]
  - Malaise [Unknown]
  - Product use issue [Unknown]
  - Condition aggravated [Unknown]
  - Wrong technique in product usage process [Unknown]
